FAERS Safety Report 12756340 (Version 3)
Quarter: 2016Q4

REPORT INFORMATION
  Report Type: Spontaneous
  Country: US (occurrence: US)
  Receive Date: 20160916
  Receipt Date: 20161106
  Transmission Date: 20170207
  Serious: No
  Sender: FDA-Public Use
  Company Number: US-RELYPSA-RLY2016002358

PATIENT
  Age: 66 Year
  Sex: Female

DRUGS (11)
  1. RENVELA [Concomitant]
     Active Substance: SEVELAMER CARBONATE
  2. VELTASSA [Suspect]
     Active Substance: PATIROMER
     Indication: HYPERKALAEMIA
     Dosage: 8.4 G, EVERY T/TH/SAT/SUN
     Route: 048
     Dates: start: 20160526
  3. TRILEPTAL [Concomitant]
     Active Substance: OXCARBAZEPINE
  4. ATIVAN [Concomitant]
     Active Substance: LORAZEPAM
  5. MAALOX ANTACID [Concomitant]
     Active Substance: ALUMINUM HYDROXIDE\DIMETHICONE\MAGNESIUM HYDROXIDE
  6. KAYEXALATE [Concomitant]
     Active Substance: SODIUM POLYSTYRENE SULFONATE
  7. SIMVASTATIN. [Concomitant]
     Active Substance: SIMVASTATIN
  8. LABETALOL HCL [Concomitant]
     Active Substance: LABETALOL HYDROCHLORIDE
  9. ZYPREXA [Concomitant]
     Active Substance: OLANZAPINE
  10. TYLENOL [Concomitant]
     Active Substance: ACETAMINOPHEN
  11. TRICOR [Concomitant]
     Active Substance: FENOFIBRATE

REACTIONS (2)
  - No adverse event [Unknown]
  - Inappropriate schedule of drug administration [Not Recovered/Not Resolved]

NARRATIVE: CASE EVENT DATE: 20160526
